FAERS Safety Report 7816060-1 (Version None)
Quarter: 2011Q4

REPORT INFORMATION
  Report Type: 
  Country: None (occurrence: None)
  Receive Date: 20111015
  Receipt Date: 20111005
  Transmission Date: 20120403
  Serious: Yes (Other)
  Sender: FDA-Public Use
  Company Number: US-ASTRAZENECA-2011SE56082

PATIENT
  Age: 56 Year
  Sex: Female

DRUGS (1)
  1. ARIMIDEX [Suspect]
     Indication: BREAST CANCER
     Route: 048

REACTIONS (5)
  - ORAL PAIN [None]
  - HYPERHIDROSIS [None]
  - BREAST CANCER [None]
  - ARTHRITIS [None]
  - MENOPAUSAL SYMPTOMS [None]
